FAERS Safety Report 10227819 (Version 1)
Quarter: 2014Q2

REPORT INFORMATION
  Report Type: Spontaneous
  Country: US (occurrence: US)
  Receive Date: 20140610
  Receipt Date: 20140610
  Transmission Date: 20141212
  Serious: No
  Sender: FDA-Public Use
  Company Number: US-BAYER-2014-086513

PATIENT
  Sex: Female

DRUGS (2)
  1. ALEVE CAPLET [Suspect]
     Indication: SPINAL COLUMN STENOSIS
     Dosage: 1 DF, UNK
     Route: 048
  2. ALEVE CAPLET [Suspect]
     Indication: SPINAL COLUMN STENOSIS
     Dosage: 1 DF, ANOTHER ONE AND A HALF HOUR LATER
     Route: 048

REACTIONS (2)
  - Drug ineffective [Unknown]
  - Intentional product misuse [None]
